FAERS Safety Report 24059917 (Version 1)
Quarter: 2024Q3

REPORT INFORMATION
  Report Type: Spontaneous
  Country: US (occurrence: None)
  Receive Date: 20240705
  Receipt Date: 20240705
  Transmission Date: 20241017
  Serious: Yes (Other)
  Sender: Public
  Company Number: None

PATIENT
  Age: 65 Year
  Sex: Female

DRUGS (14)
  1. AMBRISENTAN [Suspect]
     Active Substance: AMBRISENTAN
     Indication: Pulmonary hypertension
     Dosage: FREQUENCY : DAILY;?
     Route: 048
     Dates: start: 20240410
  2. SILDENAFIL [Concomitant]
  3. INSULIN LISPRO [Concomitant]
  4. METOPROLOL [Concomitant]
     Active Substance: METOPROLOL
  5. GABAPENTIN [Concomitant]
  6. JARDIANCE [Concomitant]
     Active Substance: EMPAGLIFLOZIN
  7. METOLAZONE [Concomitant]
  8. PRADAXA [Concomitant]
     Active Substance: DABIGATRAN ETEXILATE MESYLATE
  9. furosrmide [Concomitant]
  10. SIMVASTATIN [Concomitant]
  11. POTASSIUM CHLORIDE [Concomitant]
     Active Substance: POTASSIUM CHLORIDE
  12. VITAMIN D3 [Concomitant]
     Active Substance: CHOLECALCIFEROL
  13. BIOTIN [Concomitant]
  14. VITAMINS [Concomitant]
     Active Substance: VITAMINS

REACTIONS (2)
  - Localised infection [None]
  - Capillaritis [None]

NARRATIVE: CASE EVENT DATE: 20240625
